FAERS Safety Report 21826822 (Version 1)
Quarter: 2023Q1

REPORT INFORMATION
  Report Type: Report from Study
  Country: US (occurrence: US)
  Receive Date: 20230106
  Receipt Date: 20230106
  Transmission Date: 20230418
  Serious: No
  Sender: FDA-Public Use
  Company Number: US-ABBVIE-4224804

PATIENT
  Sex: Female

DRUGS (2)
  1. SKYRIZI [Suspect]
     Active Substance: RISANKIZUMAB-RZAA
     Indication: Psoriasis
     Route: 058
  2. SKYRIZI [Suspect]
     Active Substance: RISANKIZUMAB-RZAA
     Indication: Psoriatic arthropathy

REACTIONS (8)
  - Psoriasis [Recovered/Resolved]
  - Crohn^s disease [Unknown]
  - Papule [Unknown]
  - Therapeutic response shortened [Unknown]
  - Incorrect product administration duration [Unknown]
  - Pustule [Unknown]
  - Gastrointestinal disorder [Unknown]
  - Colitis ulcerative [Unknown]
